FAERS Safety Report 4561794-8 (Version None)
Quarter: 2005Q1

REPORT INFORMATION
  Report Type: 
  Country: None (occurrence: None)
  Receive Date: 20050125
  Receipt Date: 20050112
  Transmission Date: 20050727
  Serious: Yes (Death)
  Sender: FDA-Public Use
  Company Number: 05H-163-0287082-00

PATIENT

DRUGS (1)
  1. ISOFLURANE [Suspect]

REACTIONS (2)
  - INTENTIONAL MISUSE [None]
  - OVERDOSE [None]
